FAERS Safety Report 9630874 (Version 1)
Quarter: 2013Q4

REPORT INFORMATION
  Report Type: Spontaneous
  Country: None (occurrence: None)
  Receive Date: 20131011
  Receipt Date: 20131011
  Transmission Date: 20140711
  Serious: Yes (Other)
  Sender: FDA-Public Use
  Company Number: 2013P1019930

PATIENT
  Sex: 0

DRUGS (1)
  1. MITOMYCIN [Suspect]
     Indication: TRANSITIONAL CELL CARCINOMA

REACTIONS (3)
  - Back pain [None]
  - Nephrolithiasis [None]
  - Drug intolerance [None]
